FAERS Safety Report 7890081-5 (Version None)
Quarter: 2011Q4

REPORT INFORMATION
  Report Type: 
  Country: None (occurrence: None)
  Receive Date: 20111103
  Receipt Date: 20111026
  Transmission Date: 20120403
  Serious: Yes (Hospitalization, Other)
  Sender: FDA-Public Use
  Company Number: US-GILEAD-2011-0037953

PATIENT
  Sex: Female

DRUGS (15)
  1. SODIUM CHLORIDE [Concomitant]
     Dates: start: 20110202, end: 20110204
  2. NITROGLYCERIN [Concomitant]
  3. LANTUS [Suspect]
     Indication: TYPE 2 DIABETES MELLITUS
     Dates: start: 20090601
  4. ACTOS [Suspect]
     Indication: TYPE 2 DIABETES MELLITUS
     Dates: start: 20101215, end: 20110211
  5. HYDRALAZINE HCL [Concomitant]
     Dates: start: 20110202, end: 20110202
  6. HUMALOG [Concomitant]
     Dates: start: 20110215, end: 20110217
  7. RANOLAZINE [Suspect]
     Indication: ANGINA PECTORIS
     Dates: start: 20110202, end: 20110217
  8. INSULIN LISPRO [Suspect]
     Indication: TYPE 2 DIABETES MELLITUS
     Dates: start: 20110202, end: 20110217
  9. NITRATES [Concomitant]
  10. ASPIRIN [Concomitant]
  11. DICLOFENAC SODIUM [Suspect]
     Dates: end: 20110211
  12. LASIX [Concomitant]
     Dates: start: 20110202, end: 20110204
  13. NOVOLOG [Suspect]
     Indication: TYPE 2 DIABETES MELLITUS
     Dates: start: 20090518
  14. SAXAGLIPTIN [Suspect]
     Indication: TYPE 2 DIABETES MELLITUS
     Dates: start: 20101019
  15. MORPHINE [Concomitant]
     Dates: start: 20110202, end: 20110203

REACTIONS (7)
  - RENAL FAILURE ACUTE [None]
  - SUICIDAL IDEATION [None]
  - ASTHMA [None]
  - NON-CARDIAC CHEST PAIN [None]
  - GASTRITIS [None]
  - REFLUX GASTRITIS [None]
  - DEPRESSION [None]
